FAERS Safety Report 5926049-5 (Version None)
Quarter: 2008Q4

REPORT INFORMATION
  Report Type: 
  Country: None (occurrence: None)
  Receive Date: 20081021
  Receipt Date: 20081008
  Transmission Date: 20090506
  Serious: Yes (Other)
  Sender: FDA-Public Use
  Company Number: TW-WATSON-2008-06022

PATIENT
  Age: 46 Year
  Sex: Male

DRUGS (1)
  1. FORTAMET [Suspect]
     Indication: HYPERGLYCAEMIA
     Dosage: 500 MG, TID
     Route: 048
     Dates: start: 19980407

REACTIONS (3)
  - HAEMOLYTIC ANAEMIA [None]
  - HYPERBILIRUBINAEMIA [None]
  - JAUNDICE [None]
